FAERS Safety Report 15202719 (Version 10)
Quarter: 2019Q1

REPORT INFORMATION
  Report Type: Report from Study
  Country: PT (occurrence: PT)
  Receive Date: 20180726
  Receipt Date: 20190117
  Transmission Date: 20190417
  Serious: Yes (Hospitalization)
  Sender: FDA-Public Use
  Company Number: PT-EISAI MEDICAL RESEARCH-EC-2018-043011

PATIENT
  Age: 63 Year
  Sex: Male
  Weight: 62.9 kg

DRUGS (13)
  1. LENVATINIB [Suspect]
     Active Substance: LENVATINIB
     Indication: RENAL CELL CARCINOMA
     Route: 048
     Dates: start: 20180620, end: 20180717
  2. LENVATINIB [Suspect]
     Active Substance: LENVATINIB
     Route: 048
     Dates: start: 20181016, end: 20181025
  3. CANDESARTAN AND HIDROCLOROTIAZIDE [Concomitant]
  4. EVEROLIMUS. [Suspect]
     Active Substance: EVEROLIMUS
     Route: 048
     Dates: start: 20181126
  5. LEVOTIROXIN [Concomitant]
     Active Substance: LEVOTHYROXINE SODIUM
  6. AMLODIPINE [Concomitant]
     Active Substance: AMLODIPINE BESYLATE
  7. EVEROLIMUS. [Suspect]
     Active Substance: EVEROLIMUS
     Indication: RENAL CELL CARCINOMA
     Route: 048
     Dates: start: 20180620, end: 20180717
  8. EVEROLIMUS. [Suspect]
     Active Substance: EVEROLIMUS
     Route: 048
     Dates: start: 20180801, end: 20181008
  9. FEXOFENADINE [Concomitant]
     Active Substance: FEXOFENADINE\FEXOFENADINE HYDROCHLORIDE
  10. LENVATINIB [Suspect]
     Active Substance: LENVATINIB
     Route: 048
     Dates: start: 20180801, end: 20181008
  11. LENVATINIB [Suspect]
     Active Substance: LENVATINIB
     Route: 048
     Dates: start: 20181126
  12. LENVATINIB [Suspect]
     Active Substance: LENVATINIB
     Route: 048
     Dates: start: 20181026, end: 20181120
  13. EVEROLIMUS. [Suspect]
     Active Substance: EVEROLIMUS
     Route: 048
     Dates: start: 20181016, end: 20181120

REACTIONS (5)
  - Gastroenteritis [Recovered/Resolved]
  - Hypotension [Recovered/Resolved]
  - Diarrhoea [Recovered/Resolved]
  - Appendicitis [Recovered/Resolved]
  - Vomiting [Recovered/Resolved]

NARRATIVE: CASE EVENT DATE: 20180714
